FAERS Safety Report 6300818-4 (Version None)
Quarter: 2009Q3

REPORT INFORMATION
  Report Type: 
  Country: None (occurrence: None)
  Receive Date: 20090807
  Receipt Date: 20090725
  Transmission Date: 20100115
  Serious: Yes (Other)
  Sender: FDA-Public Use
  Company Number: US-PFIZER INC-2008078900

PATIENT
  Sex: Female
  Weight: 64.399 kg

DRUGS (8)
  1. CHANTIX [Suspect]
     Indication: SMOKING CESSATION THERAPY
     Dosage: 1 MG, 2X/DAY
     Route: 048
     Dates: start: 20080617
  2. VITAMINS [Concomitant]
  3. PRINZIDE [Concomitant]
     Indication: HYPERTENSION
  4. LOVASTATIN [Concomitant]
     Indication: BLOOD CHOLESTEROL
  5. XANAX [Concomitant]
  6. TYLENOL (CAPLET) [Concomitant]
  7. IBUPROFEN [Concomitant]
  8. XALATAN [Concomitant]

REACTIONS (4)
  - CATARACT [None]
  - INTENTIONAL DRUG MISUSE [None]
  - NAUSEA [None]
  - PRURITUS [None]
